FAERS Safety Report 9175080 (Version 1)
Quarter: 2013Q1

REPORT INFORMATION
  Report Type: Spontaneous
  Country: US (occurrence: US)
  Receive Date: 20130320
  Receipt Date: 20130320
  Transmission Date: 20140127
  Serious: Yes (Life-Threatening, Hospitalization)
  Sender: FDA-Public Use
  Company Number: US-BAYER-2012-111949

PATIENT
  Age: 41 Year
  Sex: Female
  Weight: 106.58 kg

DRUGS (5)
  1. GIANVI [Suspect]
  2. LEVAQUIN [Concomitant]
  3. PREDNISONE [Concomitant]
  4. MEGESTROL [Concomitant]
     Indication: MENOMETRORRHAGIA
  5. CIPROFLOXACIN [Concomitant]
     Indication: URINARY TRACT INFECTION

REACTIONS (1)
  - Pulmonary embolism [None]
